FAERS Safety Report 9530154 (Version 1)
Quarter: 2013Q3

REPORT INFORMATION
  Report Type: Other
  Country: JP (occurrence: JP)
  Receive Date: 20130917
  Receipt Date: 20130917
  Transmission Date: 20140515
  Serious: Yes (Other)
  Sender: FDA-Public Use
  Company Number: JP-BRISTOL-MYERS SQUIBB COMPANY-19241140

PATIENT
  Age: 3 Year
  Sex: Male

DRUGS (3)
  1. CISPLATIN [Suspect]
     Indication: HEPATOBLASTOMA
     Dosage: 120 MG/M2, WEEKLY 4 TIMES.
  2. ETOPOSIDE [Suspect]
     Indication: HEPATOBLASTOMA
     Dosage: 3.3KG/MG 3 DAYS
  3. IRINOTECAN [Suspect]
     Indication: HEPATOBLASTOMA
     Dosage: 3.3 MG/KG FOR 3 DAYS, IRINOTECAN FOR 6 MONTHS FROM AUG2009 TO FEB2010

REACTIONS (4)
  - Nephropathy [Unknown]
  - Bone marrow failure [Unknown]
  - Diarrhoea [Unknown]
  - Sepsis [Unknown]
